FAERS Safety Report 9078246 (Version 1)
Quarter: 2013Q1

REPORT INFORMATION
  Report Type: Report from Study
  Country: US (occurrence: US)
  Receive Date: 20130130
  Receipt Date: 20130130
  Transmission Date: 20140127
  Serious: No
  Sender: FDA-Public Use
  Company Number: US-ABBOTT-12P-163-0959229-00

PATIENT
  Age: 61 Year
  Sex: Female

DRUGS (13)
  1. HUMIRA 40 MG/0.8 ML PEN [Suspect]
     Indication: CROHN^S DISEASE
     Route: 058
     Dates: start: 20120417
  2. CIPRO [Suspect]
     Indication: GASTRIC ULCER
     Dates: start: 20120506
  3. FLAGYL [Suspect]
     Indication: GASTRIC ULCER
     Dates: start: 20120506
  4. BACLOFEN [Concomitant]
     Indication: MUSCLE SPASMS
     Route: 048
  5. ESTRADIOL [Concomitant]
     Indication: HORMONE REPLACEMENT THERAPY
     Dosage: DAILY
  6. ESTRADIOL [Concomitant]
     Indication: HORMONE REPLACEMENT THERAPY
     Dosage: DAILY
  7. MEDROPROGESTERONE [Concomitant]
     Indication: HORMONE REPLACEMENT THERAPY
     Dosage: DAILY
  8. MELOXICAM [Concomitant]
     Indication: FIBROMYALGIA
     Dosage: DAILY
  9. NEXIUM [Concomitant]
     Indication: GASTRIC DISORDER
     Dosage: DAILY
  10. ZOLOFT [Concomitant]
     Indication: ANXIETY
  11. ZOLOFT [Concomitant]
     Indication: DEPRESSION
  12. SIMVASTATIN [Concomitant]
     Indication: BLOOD CHOLESTEROL INCREASED
  13. ROPINIROLE [Concomitant]
     Indication: MUSCLE SPASMS

REACTIONS (6)
  - Gastric ulcer [Unknown]
  - Candida infection [Recovering/Resolving]
  - Pharyngeal oedema [Unknown]
  - Pharyngeal haemorrhage [Unknown]
  - Device malfunction [Unknown]
  - Injection site bruising [Recovering/Resolving]
